FAERS Safety Report 6618993-0 (Version None)
Quarter: 2010Q1

REPORT INFORMATION
  Report Type: 
  Country: None (occurrence: None)
  Receive Date: 20100308
  Receipt Date: 20100301
  Transmission Date: 20100710
  Serious: Yes (Hospitalization)
  Sender: FDA-Public Use
  Company Number: PHHO2010JP02680

PATIENT
  Sex: Male
  Weight: 69 kg

DRUGS (18)
  1. SANDIMMUNE [Suspect]
     Indication: RENAL TRANSPLANT
     Dosage: UNK
     Route: 048
     Dates: start: 20090308
  2. SANDIMMUNE [Suspect]
     Dosage: 100 MG, TWICE DAILY
     Route: 048
     Dates: start: 20090606
  3. MYCOPHENOLATE MOFETIL [Suspect]
     Indication: RENAL TRANSPLANT
     Dosage: 1500 MG, DAILY
     Route: 048
     Dates: start: 20090312
  4. MYCOPHENOLATE MOFETIL [Suspect]
     Dosage: 1000 MG
     Route: 048
  5. PREDONINE [Suspect]
     Indication: RENAL TRANSPLANT
     Dosage: 5 MG, DAILY
     Route: 048
     Dates: start: 20090408
  6. BAKTAR [Concomitant]
     Indication: ANTIBIOTIC PROPHYLAXIS
  7. HALCION [Concomitant]
     Indication: INSOMNIA
  8. ASPIRIN [Concomitant]
     Indication: PROPHYLAXIS
  9. ALLOID [Concomitant]
     Indication: GASTRITIS PROPHYLAXIS
  10. AMLODIPINE [Concomitant]
     Indication: HYPERTENSION
  11. CARDENALIN [Concomitant]
     Indication: HYPERTENSION
  12. DAIO-KANZO-TO [Concomitant]
     Indication: CONSTIPATION
  13. LAC B [Concomitant]
     Indication: CONSTIPATION
  14. MICARDIS [Concomitant]
     Indication: HYPERTENSION
  15. GASMOTIN [Concomitant]
     Indication: REFLUX OESOPHAGITIS
  16. ALOSENN [Concomitant]
     Indication: CONSTIPATION
  17. PROTECADIN [Concomitant]
     Indication: HYPERTENSION
  18. ALLOPURINOL [Concomitant]
     Indication: HYPERURICAEMIA

REACTIONS (6)
  - BLISTER [None]
  - CONJUNCTIVAL HYPERAEMIA [None]
  - ECZEMA [None]
  - ERYTHEMA [None]
  - HERPES ZOSTER [None]
  - NECK PAIN [None]
